FAERS Safety Report 12660499 (Version 3)
Quarter: 2017Q2

REPORT INFORMATION
  Report Type: Report from Study
  Country: None (occurrence: AR)
  Receive Date: 20160817
  Receipt Date: 20170502
  Transmission Date: 20170830
  Serious: Yes (Hospitalization, Disabling, Other)
  Sender: FDA-Public Use
  Company Number: AR-ABBVIE-15K-007-1484735-00

PATIENT
  Age: 39 Year
  Sex: Female
  Weight: 72 kg

DRUGS (7)
  1. HUMIRA [Suspect]
     Active Substance: ADALIMUMAB
     Indication: RHEUMATOID ARTHRITIS
     Route: 058
     Dates: start: 20090901, end: 201508
  2. LEFLUNOMIDE. [Concomitant]
     Active Substance: LEFLUNOMIDE
     Indication: RHEUMATOID ARTHRITIS
     Route: 048
     Dates: start: 2012, end: 2015
  3. HUMIRA [Suspect]
     Active Substance: ADALIMUMAB
     Indication: DRY EYE
  4. HUMIRA [Suspect]
     Active Substance: ADALIMUMAB
     Indication: FIBROMYALGIA
  5. METHOTREXATE. [Concomitant]
     Active Substance: METHOTREXATE
     Indication: RHEUMATOID ARTHRITIS
     Dosage: UP TO 30 MG/WEEK ORAL AND INTRAMUSCULAR
     Route: 048
     Dates: start: 2008, end: 2015
  6. METHOTREXATE. [Concomitant]
     Active Substance: METHOTREXATE
     Dosage: UP TO 30 MG/WEEK ORAL AND INTRAMUSCULAR
     Route: 030
     Dates: start: 2008, end: 2015
  7. HIDROTISONA [Concomitant]
     Indication: PRODUCT USED FOR UNKNOWN INDICATION

REACTIONS (23)
  - Lymphadenopathy [Recovered/Resolved]
  - Tongue discomfort [Unknown]
  - Pyrexia [Recovered/Resolved]
  - Laryngeal obstruction [Recovered/Resolved]
  - Lung infiltration [Recovered/Resolved]
  - Superinfection [Unknown]
  - Lymphadenopathy mediastinal [Unknown]
  - General physical health deterioration [Recovered/Resolved]
  - Granuloma [Not Recovered/Not Resolved]
  - Pharyngitis [Recovered/Resolved]
  - Pleural effusion [Recovered/Resolved]
  - Lymphadenopathy [Unknown]
  - Laryngeal oedema [Recovering/Resolving]
  - Mononucleosis syndrome [Recovered/Resolved]
  - Off label use [Unknown]
  - Lymphadenopathy [Recovering/Resolving]
  - Sarcoidosis [Not Recovered/Not Resolved]
  - Oedema peripheral [Not Recovered/Not Resolved]
  - Lipoedema [Recovering/Resolving]
  - Sarcoidosis [Recovered/Resolved]
  - Laryngeal disorder [Unknown]
  - Lymphoedema [Recovering/Resolving]
  - Adrenal insufficiency [Unknown]

NARRATIVE: CASE EVENT DATE: 200910
